FAERS Safety Report 17555820 (Version 1)
Quarter: 2020Q1

REPORT INFORMATION
  Report Type: Spontaneous
  Country: FR (occurrence: FR)
  Receive Date: 20200318
  Receipt Date: 20200318
  Transmission Date: 20200409
  Serious: Yes (Hospitalization)
  Sender: FDA-Public Use
  Company Number: FR-PFIZER INC-2020111577

PATIENT
  Age: 85 Year
  Sex: Male
  Weight: 90 kg

DRUGS (4)
  1. RIFADINE [RIFAMPICIN SODIUM] [Suspect]
     Active Substance: RIFAMPIN SODIUM
     Indication: BACTERIAL INFECTION
     Dosage: 3 DF, ONCE DAILY
     Route: 048
     Dates: start: 20191023
  2. FLUCONAZOLE. [Suspect]
     Active Substance: FLUCONAZOLE
     Indication: BACTERIAL INFECTION
     Dosage: 400 MG, UNK
     Route: 048
     Dates: start: 20191017, end: 20191105
  3. BACTRIM [Suspect]
     Active Substance: SULFAMETHOXAZOLE\TRIMETHOPRIM
     Indication: BACTERIAL INFECTION
     Dosage: UNK
     Route: 048
     Dates: start: 20191028
  4. CEFEPIME [Suspect]
     Active Substance: CEFEPIME HYDROCHLORIDE
     Indication: BACTERIAL INFECTION
     Dosage: UNK
     Route: 042
     Dates: start: 20191023, end: 20191107

REACTIONS (3)
  - Product use in unapproved indication [Unknown]
  - Acute kidney injury [Recovered/Resolved]
  - Off label use [Unknown]

NARRATIVE: CASE EVENT DATE: 20191017
